FAERS Safety Report 8255942-6 (Version None)
Quarter: 2012Q2

REPORT INFORMATION
  Report Type: 
  Country: None (occurrence: None)
  Receive Date: 20120403
  Receipt Date: 20120322
  Transmission Date: 20120825
  Serious: Yes (Hospitalization)
  Sender: FDA-Public Use
  Company Number: KR-COVIDIEN/TYCO HEALTHCARE/MALLINCKRODT-T201201036

PATIENT
  Sex: Female
  Weight: 67 kg

DRUGS (4)
  1. EXALGO [Suspect]
     Indication: PAIN MANAGEMENT
  2. EXALGO [Concomitant]
     Indication: PAIN MANAGEMENT
  3. EXALGO [Suspect]
     Indication: CANCER PAIN
     Dosage: 8 MG, QD
     Route: 048
     Dates: start: 20120215, end: 20120229
  4. EXALGO [Concomitant]
     Indication: CANCER PAIN
     Dosage: 4 MG, QD
     Dates: start: 20120207, end: 20120214

REACTIONS (2)
  - HYPOPHAGIA [None]
  - NAUSEA [None]
